FAERS Safety Report 4499218-1 (Version None)
Quarter: 2004Q4

REPORT INFORMATION
  Report Type: 
  Country: None (occurrence: None)
  Receive Date: 20041111
  Receipt Date: 20041102
  Transmission Date: 20050328
  Serious: Yes (Other)
  Sender: FDA-Public Use
  Company Number: GB-GLAXOSMITHKLINE-B0350357A

PATIENT

DRUGS (10)
  1. ABACAVIR SULPHATE [Suspect]
     Indication: HIV INFECTION
     Route: 065
  2. LAMIVUDINE [Suspect]
     Indication: HIV INFECTION
     Route: 065
  3. ZIDOVUDINE [Suspect]
     Indication: HIV INFECTION
     Route: 065
  4. NEVIRAPINE [Suspect]
     Route: 065
  5. LANSOPRAZOLE [Concomitant]
  6. ERYTHROMYCIN [Concomitant]
  7. PENTAMIDINE [Concomitant]
  8. ALLOPURINOL [Concomitant]
  9. ITRACONAZOLE [Concomitant]
  10. CYTOTOXIC THERAPY [Concomitant]

REACTIONS (2)
  - HAEMOLYSIS [None]
  - HAEMOLYTIC ANAEMIA [None]
